FAERS Safety Report 6555086-5 (Version None)
Quarter: 2010Q1

REPORT INFORMATION
  Report Type: 
  Country: None (occurrence: None)
  Receive Date: 20100126
  Receipt Date: 20100126
  Transmission Date: 20100710
  Serious: Yes (Hospitalization)
  Sender: FDA-Public Use
  Company Number: None

PATIENT
  Age: 8 Year
  Sex: Female
  Weight: 29 kg

DRUGS (1)
  1. VANCOMYCIN [Suspect]
     Indication: TRACHEITIS
     Dosage: 435 MG Q6H IV
     Route: 042
     Dates: start: 20090926

REACTIONS (4)
  - INFUSION SITE DISCOLOURATION [None]
  - INFUSION SITE ERYTHEMA [None]
  - INFUSION SITE EXTRAVASATION [None]
  - INFUSION SITE SWELLING [None]
